FAERS Safety Report 8850110 (Version 1)
Quarter: 2012Q4

REPORT INFORMATION
  Report Type: 
  Country: US (occurrence: US)
  Receive Date: 20121019
  Receipt Date: 20121019
  Transmission Date: 20130627
  Serious: Yes (Hospitalization, Other)
  Sender: FDA-Public Use
  Company Number: US-TEVA-365230USA

PATIENT
  Age: 20 Year
  Sex: Male

DRUGS (12)
  1. DOXEPIN [Suspect]
     Indication: OVERDOSE
     Dosage: known access to }3g
     Route: 065
  2. CITALOPRAM [Suspect]
     Indication: OVERDOSE
     Dosage: known access to 1.2g
     Route: 065
  3. LEVETIRACETAM [Suspect]
     Indication: OVERDOSE
     Route: 065
  4. LIPID EMULSION [Suspect]
     Indication: CARDIAC ARREST
     Dosage: 1.5 ml/kg of 20%; then 0.25 mL/kg/min for 30 min; 2nd bolus given 2h later; total: 1210cc
     Route: 040
  5. LIPID EMULSION [Suspect]
     Indication: CARDIAC ARREST
     Dosage: 0.25 ml/kg/min for 30 min; repeated after 2nd bolus; total: 1210cc
     Route: 041
  6. LORAZEPAM [Concomitant]
     Route: 065
  7. FOSPHENYTOIN [Concomitant]
     Route: 065
  8. SODIUM BICARBONATE [Concomitant]
     Indication: ELECTROCARDIOGRAM QRS COMPLEX PROLONGED
     Dosage: 150mEq; followed by additional doses; total: 1550mEq
     Route: 042
  9. SODIUM BICARBONATE [Concomitant]
     Indication: CARDIAC ARREST
     Dosage: additional doses; total: 1550mEq
     Route: 042
  10. EPINEPHRINE [Concomitant]
     Indication: CARDIAC ARREST
     Route: 065
  11. NOREPINEPHRINE [Concomitant]
     Dosage: infusion
     Route: 050
  12. AMIODARONE [Concomitant]
     Dosage: infusion
     Route: 050

REACTIONS (6)
  - Unresponsive to stimuli [Recovered/Resolved]
  - Grand mal convulsion [Recovered/Resolved]
  - Electrocardiogram QRS complex prolonged [Recovered/Resolved]
  - Cardiac arrest [Recovered/Resolved]
  - Overdose [Recovered/Resolved]
  - Toxicity to various agents [Recovered/Resolved]
